FAERS Safety Report 4762889-6 (Version None)
Quarter: 2005Q3

REPORT INFORMATION
  Report Type: 
  Country: None (occurrence: None)
  Receive Date: 20050907
  Receipt Date: 20050715
  Transmission Date: 20060218
  Serious: Yes (Hospitalization)
  Sender: FDA-Public Use
  Company Number: CH-GILEAD-2005-0008533

PATIENT
  Age: 41 Year
  Sex: Male
  Weight: 57 kg

DRUGS (6)
  1. VIREAD [Suspect]
     Indication: HIV INFECTION
     Route: 048
     Dates: start: 20050401, end: 20050527
  2. KALETRA [Concomitant]
     Indication: HIV INFECTION
     Route: 048
  3. ALDACTONE [Concomitant]
     Route: 048
     Dates: end: 20050531
  4. ALDACTONE [Concomitant]
     Route: 048
     Dates: start: 20050602
  5. AMPHO-MORONAL [Concomitant]
     Route: 048
     Dates: end: 20050501
  6. MAGNESIOCARD CITRON [Concomitant]
     Route: 048

REACTIONS (14)
  - ADRENAL INSUFFICIENCY [None]
  - BLOOD CALCIUM DECREASED [None]
  - BLOOD CREATINE PHOSPHOKINASE INCREASED [None]
  - BLOOD LACTIC ACID INCREASED [None]
  - BLOOD PHOSPHORUS DECREASED [None]
  - CREATININE URINE DECREASED [None]
  - DEMYELINATING POLYNEUROPATHY [None]
  - HYPOALBUMINAEMIA [None]
  - MUSCLE SPASMS [None]
  - PROTEIN URINE PRESENT [None]
  - URINE CALCIUM INCREASED [None]
  - URINE POTASSIUM INCREASED [None]
  - URINE PROTEIN/CREATININE RATIO INCREASED [None]
  - URINE SODIUM DECREASED [None]
